FAERS Safety Report 15796637 (Version 1)
Quarter: 2019Q1

REPORT INFORMATION
  Report Type: Spontaneous
  Country: US (occurrence: US)
  Receive Date: 20190108
  Receipt Date: 20190108
  Transmission Date: 20190417
  Serious: No
  Sender: FDA-Public Use
  Company Number: US-AUROBINDO-AUR-APL-2018-044691

PATIENT

DRUGS (1)
  1. DEXTROAMPHET SACCHARAT, AMPHET ASPARTATE, DEXTROAMPHET SULFATE AND AMPHET SULFAT [Suspect]
     Active Substance: AMPHETAMINE ASPARTATE\AMPHETAMINE SULFATE\DEXTROAMPHETAMINE SACCHARATE\DEXTROAMPHETAMINE SULFATE
     Indication: PRODUCT USED FOR UNKNOWN INDICATION
     Dosage: UNK
     Route: 065

REACTIONS (14)
  - Malaise [Unknown]
  - Anxiety [Unknown]
  - Oropharyngeal pain [Unknown]
  - Mouth swelling [Unknown]
  - Oral pain [Unknown]
  - Swollen tongue [Unknown]
  - Drug ineffective [Unknown]
  - Swelling [Unknown]
  - Hypersensitivity [Unknown]
  - Product substitution issue [Unknown]
  - Stomatitis [Unknown]
  - Pain [Unknown]
  - Pharyngeal oedema [Unknown]
  - Somnolence [Unknown]
